FAERS Safety Report 4595728-7 (Version None)
Quarter: 2005Q1

REPORT INFORMATION
  Report Type: 
  Country: None (occurrence: None)
  Receive Date: 20050224
  Receipt Date: 20050224
  Transmission Date: 20050727
  Serious: Yes (Other)
  Sender: FDA-Public Use
  Company Number: None

PATIENT

DRUGS (1)
  1. ZYVOX [Suspect]
     Dosage: 600 MG IVPB [POSSIBLY FIRST DOSE]
     Route: 042

REACTIONS (2)
  - CHEST PAIN [None]
  - INFUSION RELATED REACTION [None]
